FAERS Safety Report 24038826 (Version 1)
Quarter: 2024Q3

REPORT INFORMATION
  Report Type: Spontaneous
  Country: AU (occurrence: AU)
  Receive Date: 20240702
  Receipt Date: 20240702
  Transmission Date: 20241017
  Serious: Yes (Other)
  Sender: TEVA
  Company Number: AU-TEVA-VS-3211462

PATIENT
  Age: 49 Year
  Sex: Male

DRUGS (10)
  1. RABEPRAZOLE SODIUM [Suspect]
     Active Substance: RABEPRAZOLE SODIUM
     Indication: Product used for unknown indication
     Route: 065
  2. NICOTINE [Suspect]
     Active Substance: NICOTINE
     Indication: Product used for unknown indication
     Route: 065
  3. CITALOPRAM [Concomitant]
     Active Substance: CITALOPRAM\CITALOPRAM HYDROBROMIDE
  4. CARIPRAZINE [Concomitant]
     Active Substance: CARIPRAZINE
  5. THIAMINE [Concomitant]
     Active Substance: THIAMINE
  6. ATORVASTATIN CALCIUM [Concomitant]
     Active Substance: ATORVASTATIN CALCIUM
  7. ATROPINE [Concomitant]
     Active Substance: ATROPINE
  8. CLOZAPINE [Concomitant]
     Active Substance: CLOZAPINE
  9. DIAZEPAM [Concomitant]
     Active Substance: DIAZEPAM
  10. PROPRANOLOL HYDROCHLORIDE [Concomitant]
     Active Substance: PROPRANOLOL HYDROCHLORIDE

REACTIONS (14)
  - Electrocardiogram QT prolonged [Unknown]
  - Blood calcium abnormal [Unknown]
  - Orthostatic hypotension [Unknown]
  - Left ventricular hypertrophy [Unknown]
  - Blood glucose increased [Unknown]
  - Blood prolactin abnormal [Unknown]
  - Blood urea abnormal [Unknown]
  - Diarrhoea [Unknown]
  - Electrocardiogram ST-T segment abnormal [Unknown]
  - Liver function test abnormal [Unknown]
  - QRS axis abnormal [Unknown]
  - Sleep apnoea syndrome [Unknown]
  - Treatment noncompliance [Unknown]
  - Vitamin D abnormal [Unknown]
